FAERS Safety Report 4933123-9 (Version None)
Quarter: 2006Q1

REPORT INFORMATION
  Report Type: 
  Country: None (occurrence: None)
  Receive Date: 20060306
  Receipt Date: 20060220
  Transmission Date: 20060701
  Serious: Yes (Hospitalization)
  Sender: FDA-Public Use
  Company Number: 2006CG00409

PATIENT
  Age: 81 Year
  Sex: Male

DRUGS (6)
  1. NEXIUM [Suspect]
     Route: 048
     Dates: end: 20060201
  2. REMINYL [Suspect]
     Indication: DEMENTIA ALZHEIMER'S TYPE
     Dates: end: 20060201
  3. AVLOCARDYL [Concomitant]
     Indication: CORONARY ARTERY INSUFFICIENCY
     Route: 048
  4. PREVISCAN [Concomitant]
     Indication: CORONARY ARTERY INSUFFICIENCY
  5. ELISOR [Concomitant]
     Indication: HYPERCHOLESTEROLAEMIA
  6. LEVOTHYROX [Concomitant]
     Indication: HYPOTHYROIDISM

REACTIONS (5)
  - AGITATION [None]
  - CONDITION AGGRAVATED [None]
  - CONFUSIONAL STATE [None]
  - DISORIENTATION [None]
  - HEPATITIS [None]
